FAERS Safety Report 16692566 (Version 2)
Quarter: 2019Q3

REPORT INFORMATION
  Report Type: Report from Study
  Country: JP (occurrence: JP)
  Receive Date: 20190812
  Receipt Date: 20190812
  Transmission Date: 20191004
  Serious: Yes (Other)
  Sender: FDA-Public Use
  Company Number: JP-ROCHE-2369343

PATIENT

DRUGS (4)
  1. BENDAMUSTINE [Suspect]
     Active Substance: BENDAMUSTINE
     Indication: B-CELL LYMPHOMA RECURRENT
  2. BENDAMUSTINE [Suspect]
     Active Substance: BENDAMUSTINE
     Indication: B-CELL LYMPHOMA REFRACTORY
     Route: 042
  3. RITUXIMAB. [Suspect]
     Active Substance: RITUXIMAB
     Indication: B-CELL LYMPHOMA REFRACTORY
     Dosage: ON DAY 1
     Route: 042
  4. RITUXIMAB. [Suspect]
     Active Substance: RITUXIMAB
     Indication: B-CELL LYMPHOMA RECURRENT

REACTIONS (22)
  - Dyspnoea [Unknown]
  - Blister [Unknown]
  - Amoebic dysentery [Unknown]
  - Neutropenia [Unknown]
  - Thrombocytopenia [Unknown]
  - Wheezing [Unknown]
  - Hypertension [Unknown]
  - Leukopenia [Unknown]
  - Decreased appetite [Unknown]
  - Pyrexia [Unknown]
  - Anaemia [Unknown]
  - Opportunistic infection [Unknown]
  - Nausea [Unknown]
  - Vomiting [Unknown]
  - Diarrhoea [Unknown]
  - Urticaria [Unknown]
  - Lymphopenia [Unknown]
  - Fatigue [Unknown]
  - Pneumonia bacterial [Unknown]
  - Dizziness [Unknown]
  - Toxic skin eruption [Unknown]
  - Febrile neutropenia [Unknown]
